FAERS Safety Report 6493769-6 (Version None)
Quarter: 2009Q4

REPORT INFORMATION
  Report Type: 
  Country: None (occurrence: None)
  Receive Date: 20091214
  Receipt Date: 20081204
  Transmission Date: 20100525
  Serious: Yes (Other)
  Sender: FDA-Public Use
  Company Number: US-BRISTOL-MYERS SQUIBB COMPANY-14379416

PATIENT
  Age: 46 Year
  Sex: Female

DRUGS (11)
  1. ABILIFY [Suspect]
     Indication: DEPRESSION
     Route: 048
     Dates: start: 20080610, end: 20080917
  2. ABILIFY [Suspect]
     Indication: AFFECTIVE DISORDER
     Route: 048
     Dates: start: 20080610, end: 20080917
  3. LITHIUM CARBONATE [Concomitant]
     Dates: start: 19970101
  4. LAMICTAL [Concomitant]
     Dates: start: 20010101
  5. TOPAMAX [Concomitant]
     Dates: start: 20070901
  6. SEROQUEL [Concomitant]
     Dates: start: 19990101
  7. DIOVAN [Concomitant]
     Dates: start: 20030101
  8. SULAR [Concomitant]
     Dates: start: 20030101
  9. PRAVASTATIN SODIUM [Concomitant]
     Dates: start: 20030101
  10. LEVOXYL [Concomitant]
     Dates: start: 19970101
  11. GEMFIBROZIL [Concomitant]
     Dates: start: 20030101

REACTIONS (2)
  - PAIN [None]
  - TRANSIENT ISCHAEMIC ATTACK [None]
